FAERS Safety Report 7860013-4 (Version None)
Quarter: 2011Q4

REPORT INFORMATION
  Report Type: 
  Country: None (occurrence: None)
  Receive Date: 20111025
  Receipt Date: 20111010
  Transmission Date: 20120403
  Serious: Yes (Other)
  Sender: FDA-Public Use
  Company Number: 2011MA009427

PATIENT
  Age: 70 Year
  Sex: Female
  Weight: 68.0396 kg

DRUGS (23)
  1. CLINDEX [Concomitant]
  2. METOCLOPRAMIDE [Suspect]
     Indication: GASTROOESOPHAGEAL REFLUX DISEASE
     Dosage: 10 MG;QID
     Dates: start: 20030301
  3. METOCLOPRAMIDE [Suspect]
     Indication: GASTRITIS
     Dosage: 10 MG;QID
     Dates: start: 20030301
  4. ATENOLOL [Concomitant]
  5. NEXIUM [Concomitant]
  6. CIMETIDINE [Concomitant]
  7. MIDRIN [Concomitant]
  8. PROCARDIA [Concomitant]
  9. LEXAPRO [Concomitant]
  10. LIPITOR [Concomitant]
  11. SKELAXIN [Concomitant]
  12. XANAX [Concomitant]
  13. DESYREL [Concomitant]
  14. FIORICET [Concomitant]
  15. LESCOL [Concomitant]
  16. SINEQUAN [Concomitant]
  17. ULTRAM [Concomitant]
  18. ZOLOFT [Concomitant]
  19. ELAVIL [Concomitant]
  20. EFFEXOR [Concomitant]
  21. ZYRTEC [Concomitant]
  22. AMITRIPTYLINE HCL [Concomitant]
  23. VICODIN [Concomitant]

REACTIONS (9)
  - TONGUE DISORDER [None]
  - PAIN [None]
  - AGGRESSION [None]
  - TARDIVE DYSKINESIA [None]
  - ANXIETY [None]
  - DYSARTHRIA [None]
  - FEELING ABNORMAL [None]
  - DYSKINESIA [None]
  - MASTICATION DISORDER [None]
